FAERS Safety Report 25575733 (Version 1)
Quarter: 2025Q3

REPORT INFORMATION
  Report Type: Spontaneous
  Country: US (occurrence: US)
  Receive Date: 20250718
  Receipt Date: 20250718
  Transmission Date: 20251020
  Serious: No
  Sender: SANDOZ
  Company Number: US-SANDOZ-SDZ2025US049686

PATIENT
  Age: 66 Year
  Sex: Female

DRUGS (1)
  1. COMBIPATCH [Suspect]
     Active Substance: ESTRADIOL\NORETHINDRONE ACETATE
     Indication: Menopausal symptoms
     Route: 062

REACTIONS (4)
  - Headache [Recovered/Resolved]
  - Product storage error [Recovered/Resolved]
  - Device use issue [Unknown]
  - Product dose omission issue [Recovered/Resolved]
